FAERS Safety Report 12286423 (Version 2)
Quarter: 2016Q2

REPORT INFORMATION
  Report Type: Report from Study
  Country: BR (occurrence: BR)
  Receive Date: 20160420
  Receipt Date: 20160426
  Transmission Date: 20160815
  Serious: Yes (Other)
  Sender: FDA-Public Use
  Company Number: PHHY2016BR052645

PATIENT
  Sex: Female
  Weight: 66 kg

DRUGS (1)
  1. ACLASTA [Suspect]
     Active Substance: ZOLEDRONIC ACID
     Indication: OSTEOPOROSIS
     Dosage: 5 MG, Q12MO
     Route: 042
     Dates: start: 20150525, end: 20150525

REACTIONS (4)
  - Malaise [Recovering/Resolving]
  - Peripheral swelling [Unknown]
  - Chikungunya virus infection [Recovering/Resolving]
  - Arthralgia [Recovering/Resolving]
